FAERS Safety Report 7960928-2 (Version None)
Quarter: 2011Q4

REPORT INFORMATION
  Report Type: 
  Country: None (occurrence: None)
  Receive Date: 20111202
  Receipt Date: 20111122
  Transmission Date: 20120403
  Serious: Yes (Other)
  Sender: FDA-Public Use
  Company Number: 1115994

PATIENT
  Age: 6 Month
  Sex: Male
  Weight: 7 kg

DRUGS (12)
  1. MIDAZOLAM [Concomitant]
  2. ACETAMINOPHEN [Concomitant]
  3. ALBUTEROL SULFATE AUTOHALER [Concomitant]
  4. FUROSEMIDE [Concomitant]
  5. POTASSIUM CHLORIDE [Concomitant]
  6. VANCOMYCIN HCL [Suspect]
     Indication: BACTERIAL INFECTION
     Dosage: 105 MG MILLIGRAM(S), INTRAVENOUS (NOT OTHERWISE SPECIFIED)
     Route: 042
     Dates: start: 20111110, end: 20111110
  7. (CEFOTAXINE) [Concomitant]
  8. ASPIRIN [Concomitant]
  9. (MILRINONE) [Concomitant]
  10. (CHLORAL HYDRATE) [Concomitant]
  11. FENTANYL [Concomitant]
  12. L-CARNITINE [Concomitant]

REACTIONS (3)
  - ASPIRATION [None]
  - ERYTHEMA [None]
  - TRANSFUSION REACTION [None]
